FAERS Safety Report 11871830 (Version 4)
Quarter: 2017Q1

REPORT INFORMATION
  Report Type: Spontaneous
  Country: US (occurrence: US)
  Receive Date: 20151228
  Receipt Date: 20170217
  Transmission Date: 20170428
  Serious: No
  Sender: FDA-Public Use
  Company Number: US-GLAXOSMITHKLINE-US2015179020

PATIENT
  Age: 66 Year
  Sex: Female

DRUGS (16)
  1. ADVAIR DISKUS [Suspect]
     Active Substance: FLUTICASONE PROPIONATE\SALMETEROL XINAFOATE
     Dosage: 1 PUFF(S), BID, 500/50 UG
     Route: 055
     Dates: start: 20151211
  2. CITALOPRAM [Concomitant]
     Active Substance: CITALOPRAM HYDROBROMIDE
  3. LASTACAFT [Concomitant]
     Active Substance: ALCAFTADINE
  4. LOSARTAN POTASSIUM. [Concomitant]
     Active Substance: LOSARTAN POTASSIUM
  5. LORATIDINE [Concomitant]
     Active Substance: LORATADINE
  6. ADVAIR DISKUS [Suspect]
     Active Substance: FLUTICASONE PROPIONATE\SALMETEROL XINAFOATE
     Dosage: 500/50 UG, 1 PUFF(S), BID
     Route: 055
  7. MONTELUKAST [Concomitant]
     Active Substance: MONTELUKAST SODIUM
  8. FLUNISOLIDE. [Concomitant]
     Active Substance: FLUNISOLIDE
  9. TRIAMT + HCTZ [Concomitant]
  10. XOPENEX [Concomitant]
     Active Substance: LEVALBUTEROL HYDROCHLORIDE
  11. ADVAIR DISKUS [Suspect]
     Active Substance: FLUTICASONE PROPIONATE\SALMETEROL XINAFOATE
     Indication: ASTHMA
     Dosage: 1 PUFF(S), BID, 250/50 UG
     Route: 055
     Dates: start: 2012, end: 20151211
  12. LYRICA [Concomitant]
     Active Substance: PREGABALIN
  13. RANITIDINE. [Concomitant]
     Active Substance: RANITIDINE
  14. ATORVASTATIN [Concomitant]
     Active Substance: ATORVASTATIN
  15. RESTASIS [Concomitant]
     Active Substance: CYCLOSPORINE
  16. VERAPAMIL [Concomitant]
     Active Substance: VERAPAMIL HYDROCHLORIDE

REACTIONS (7)
  - Oral pain [Not Recovered/Not Resolved]
  - Dry mouth [Recovered/Resolved]
  - Dysphagia [Not Recovered/Not Resolved]
  - Cough [Unknown]
  - Overdose [Unknown]
  - Stomatitis [Not Recovered/Not Resolved]
  - Odynophagia [Not Recovered/Not Resolved]

NARRATIVE: CASE EVENT DATE: 2012
